FAERS Safety Report 20863584 (Version 4)
Quarter: 2022Q4

REPORT INFORMATION
  Report Type: Spontaneous
  Country: US (occurrence: US)
  Receive Date: 20220523
  Receipt Date: 20221014
  Transmission Date: 20230113
  Serious: No
  Sender: FDA-Public Use
  Company Number: US-BRISTOL-MYERS SQUIBB COMPANY-2022-041337

PATIENT
  Age: 77 Year
  Sex: Female
  Weight: 62.6 kg

DRUGS (4)
  1. REVLIMID [Suspect]
     Active Substance: LENALIDOMIDE
     Indication: Plasma cell myeloma
     Dosage: 10MG  21 DAYS 7 DAYS OFF.
     Route: 048
     Dates: start: 202009
  2. EMPLICITI [Suspect]
     Active Substance: ELOTUZUMAB
     Indication: Product used for unknown indication
     Route: 065
     Dates: start: 20220509
  3. DEXAMETHASONE [Suspect]
     Active Substance: DEXAMETHASONE
     Indication: Product used for unknown indication
     Route: 065
     Dates: start: 20220509
  4. IMODIUM AD [Suspect]
     Active Substance: LOPERAMIDE HYDROCHLORIDE
     Indication: Diarrhoea
     Route: 065

REACTIONS (11)
  - Pain [Unknown]
  - Diarrhoea [Not Recovered/Not Resolved]
  - Muscular weakness [Unknown]
  - Balance disorder [Unknown]
  - Back pain [Unknown]
  - Myalgia [Unknown]
  - Fatigue [Recovered/Resolved]
  - Oropharyngeal pain [Unknown]
  - Dysphonia [Unknown]
  - Somnolence [Recovered/Resolved]
  - Constipation [Unknown]

NARRATIVE: CASE EVENT DATE: 20210101
